FAERS Safety Report 5276820-0 (Version None)
Quarter: 2007Q1

REPORT INFORMATION
  Report Type: 
  Country: None (occurrence: None)
  Receive Date: 20070327
  Receipt Date: 20070320
  Transmission Date: 20070707
  Serious: Yes (Death, Hospitalization)
  Sender: FDA-Public Use
  Company Number: US-BRISTOL-MYERS SQUIBB COMPANY-11877966

PATIENT
  Age: 83 Year
  Sex: Male

DRUGS (8)
  1. VEPESID [Suspect]
     Indication: PROSTATE CANCER
     Route: 048
     Dates: start: 20000317, end: 20000329
  2. ESTRACYT [Suspect]
     Indication: PROSTATE CANCER
     Route: 048
     Dates: start: 20000317, end: 20000329
  3. ALOTEC [Concomitant]
     Route: 048
  4. GASTER [Concomitant]
     Route: 048
     Dates: start: 20000317
  5. GRAN [Concomitant]
     Route: 058
     Dates: start: 20000401, end: 20000411
  6. TIENAM [Concomitant]
     Route: 041
     Dates: start: 20000401, end: 20000410
  7. DIFLUCAN [Concomitant]
     Route: 041
     Dates: start: 20000401, end: 20000414
  8. VENOGLOBULIN [Concomitant]
     Route: 041
     Dates: start: 20000401, end: 20000403

REACTIONS (2)
  - INTERSTITIAL LUNG DISEASE [None]
  - WHITE BLOOD CELL COUNT DECREASED [None]
